FAERS Safety Report 7810936-7 (Version None)
Quarter: 2011Q4

REPORT INFORMATION
  Report Type: 
  Country: None (occurrence: None)
  Receive Date: 20111013
  Receipt Date: 20111010
  Transmission Date: 20120403
  Serious: No
  Sender: FDA-Public Use
  Company Number: US-PFIZER INC-2011242541

PATIENT
  Sex: Female

DRUGS (2)
  1. EFFEXOR XR [Suspect]
     Dosage: UNK
     Route: 048
  2. ADDERALL 5 [Concomitant]
     Dosage: UNK
     Route: 048

REACTIONS (2)
  - ANORGASMIA [None]
  - LIBIDO DECREASED [None]
